FAERS Safety Report 5852913-1 (Version None)
Quarter: 2008Q3

REPORT INFORMATION
  Report Type: 
  Country: None (occurrence: None)
  Receive Date: 20080821
  Receipt Date: 20080819
  Transmission Date: 20090109
  Serious: Yes (Death)
  Sender: FDA-Public Use
  Company Number: BR-ASTRAZENECA-2008UW16694

PATIENT
  Age: 86 Year
  Sex: Female

DRUGS (4)
  1. SEROQUEL [Suspect]
     Indication: DEPRESSION
     Route: 048
  2. SEROQUEL [Suspect]
     Indication: PARKINSON'S DISEASE
     Route: 048
  3. PROLOPA [Concomitant]
  4. COZAAR [Concomitant]
     Indication: HYPERTENSION

REACTIONS (1)
  - CARDIAC FAILURE [None]
